FAERS Safety Report 17032330 (Version 1)
Quarter: 2019Q4

REPORT INFORMATION
  Report Type: Spontaneous
  Country: GR (occurrence: GR)
  Receive Date: 20191114
  Receipt Date: 20191114
  Transmission Date: 20200122
  Serious: Yes (Death)
  Sender: FDA-Public Use
  Company Number: GR-JNJFOC-20191108143

PATIENT
  Age: 47 Year
  Sex: Male

DRUGS (1)
  1. ALOPERIDIN DECANOAS [Suspect]
     Active Substance: HALOPERIDOL DECANOATE
     Indication: SCHIZOPHRENIA
     Route: 048

REACTIONS (1)
  - Completed suicide [Fatal]
